FAERS Safety Report 23108405 (Version 1)
Quarter: 2023Q4

REPORT INFORMATION
  Report Type: Spontaneous
  Country: NL (occurrence: NL)
  Receive Date: 20231026
  Receipt Date: 20231026
  Transmission Date: 20240109
  Serious: Yes (Hospitalization)
  Sender: FDA-Public Use
  Company Number: None

PATIENT
  Age: 67 Year
  Sex: Female

DRUGS (4)
  1. CAPECITABINE [Suspect]
     Active Substance: CAPECITABINE
     Indication: Colorectal cancer metastatic
     Dosage: DATE OF LAST DOSE: 23/FEB/2022
     Dates: start: 20220204
  2. OXALIPLATIN [Suspect]
     Active Substance: OXALIPLATIN
     Indication: Colorectal cancer metastatic
     Dosage: DATE OF LAST DOSE: 23/FEB/2022
     Dates: start: 20220204, end: 20220223
  3. BEVACIZUMAB [Suspect]
     Active Substance: BEVACIZUMAB
     Indication: Colorectal cancer metastatic
     Dosage: DATE OF LAST DOSE: 23/FEB/2022
     Dates: start: 20220204, end: 20220223
  4. CAPECITABINE [Suspect]
     Active Substance: CAPECITABINE
     Indication: Colorectal cancer metastatic
     Dosage: 4000 MG/M2, TWICE A DAY; DATE OF LAST DOSE: 23/FEB/2022
     Dates: start: 20220204, end: 20220223

REACTIONS (2)
  - Arteriospasm coronary [Unknown]
  - Pleural effusion [Recovered/Resolved]

NARRATIVE: CASE EVENT DATE: 20220223
